FAERS Safety Report 22286940 (Version 1)
Quarter: 2023Q2

REPORT INFORMATION
  Report Type: Spontaneous
  Country: US (occurrence: US)
  Receive Date: 20230505
  Receipt Date: 20230505
  Transmission Date: 20230722
  Serious: No
  Sender: FDA-Public Use
  Company Number: US-BAUSCHBL-2023BNL003685

PATIENT
  Age: 33 Year
  Sex: Male

DRUGS (1)
  1. VYZULTA [Suspect]
     Active Substance: LATANOPROSTENE BUNOD
     Indication: Intraocular pressure increased
     Route: 047
     Dates: start: 20230420

REACTIONS (3)
  - Conjunctivitis [Unknown]
  - Photophobia [Unknown]
  - Reaction to preservatives [Unknown]

NARRATIVE: CASE EVENT DATE: 20230420
